FAERS Safety Report 12221535 (Version 1)
Quarter: 2016Q1

REPORT INFORMATION
  Report Type: Spontaneous
  Country: PK (occurrence: PK)
  Receive Date: 20160330
  Receipt Date: 20160330
  Transmission Date: 20160526
  Serious: Yes (Death)
  Sender: FDA-Public Use
  Company Number: PK-SA-2016SA057593

PATIENT
  Sex: Male

DRUGS (2)
  1. CHLOROQUINE. [Suspect]
     Active Substance: CHLOROQUINE
     Dosage: 3-4 TABLETS MIXED IN MEALS
     Route: 048
  2. CHLOROQUINE. [Suspect]
     Active Substance: CHLOROQUINE
     Dosage: SEVERAL TABLETS MIXED IN MEAL
     Route: 048

REACTIONS (2)
  - Myocardial infarction [Fatal]
  - Toxicity to various agents [Fatal]
